FAERS Safety Report 13940651 (Version 1)
Quarter: 2017Q3

REPORT INFORMATION
  Report Type: Spontaneous
  Country: CN (occurrence: CN)
  Receive Date: 20170906
  Receipt Date: 20170906
  Transmission Date: 20171127
  Serious: Yes (Other)
  Sender: FDA-Public Use
  Company Number: CN-BRISTOL-MYERS SQUIBB COMPANY-BMS-2017-079271

PATIENT
  Age: 35 Year
  Sex: Male
  Weight: 51 kg

DRUGS (3)
  1. VIREAD [Suspect]
     Active Substance: TENOFOVIR DISOPROXIL FUMARATE
     Indication: VIRAL INFECTION
     Dosage: 300 MG, QD
     Route: 048
     Dates: start: 20170629, end: 20170713
  2. LAMIVUDINE. [Suspect]
     Active Substance: LAMIVUDINE
     Indication: VIRAL INFECTION
     Dosage: 300 MG, QD
     Route: 048
     Dates: start: 20170629, end: 20170713
  3. STOCRIN [Suspect]
     Active Substance: EFAVIRENZ
     Indication: VIRAL INFECTION
     Dosage: 600 MG, QD
     Route: 048
     Dates: start: 20170629, end: 20170713

REACTIONS (3)
  - Jaundice [Unknown]
  - Liver disorder [Unknown]
  - Asthenia [Unknown]

NARRATIVE: CASE EVENT DATE: 20170713
